FAERS Safety Report 8588567-3 (Version None)
Quarter: 2012Q3

REPORT INFORMATION
  Report Type: 
  Country: None (occurrence: None)
  Receive Date: 20120813
  Receipt Date: 20120801
  Transmission Date: 20120928
  Serious: Yes (Other)
  Sender: FDA-Public Use
  Company Number: US-NOVOPROD-357664

PATIENT
  Sex: Male
  Weight: 2.79 kg

DRUGS (2)
  1. NOVOLIN R [Suspect]
     Indication: GESTATIONAL DIABETES
     Dosage: 23 U, QD (13 UNITS AM AND 10 UNITS PM)
     Route: 064
     Dates: start: 20120321, end: 20120607
  2. NOVOLIN N [Suspect]
     Indication: GESTATIONAL DIABETES
     Dosage: 35 U, QD (25 UNITS AM AND 10 UNITS PM)
     Route: 064
     Dates: start: 20120321, end: 20120607

REACTIONS (3)
  - FOETAL DISTRESS SYNDROME [None]
  - FOETAL HEART RATE DISORDER [None]
  - FOETAL EXPOSURE DURING PREGNANCY [None]
